FAERS Safety Report 10997010 (Version 6)
Quarter: 2016Q1

REPORT INFORMATION
  Report Type: Report from Study
  Country: US (occurrence: None)
  Receive Date: 20150406
  Receipt Date: 20160223
  Transmission Date: 20160525
  Serious: Yes (Death, Hospitalization, Other)
  Sender: FDA-Public Use
  Company Number: ADR-2014-01833

PATIENT
  Age: 30 Year
  Sex: Female

DRUGS (2)
  1. DILAUDID [Suspect]
     Active Substance: HYDROMORPHONE HYDROCHLORIDE
     Indication: CANCER PAIN
     Dosage: 0.5995 MG/DAY
  2. COMPOUNDED BACLOFEN INTRATHECAL 250 MCG/ML [Suspect]
     Active Substance: BACLOFEN
     Indication: CANCER PAIN
     Dosage: 49.96 MCG/DAY

REACTIONS (14)
  - Hypoaesthesia [None]
  - Abasia [None]
  - Neoplasm progression [None]
  - Constipation [None]
  - Burning sensation [None]
  - Muscular weakness [None]
  - Adverse drug reaction [None]
  - Tremor [None]
  - Urinary retention [None]
  - Dyspnoea [None]
  - Pruritus [None]
  - Hypotension [None]
  - Paraesthesia [None]
  - Catheter site mass [None]
